FAERS Safety Report 18524614 (Version 4)
Quarter: 2021Q2

REPORT INFORMATION
  Report Type: Report from Study
  Country: GB (occurrence: GB)
  Receive Date: 20201119
  Receipt Date: 20210414
  Transmission Date: 20210717
  Serious: Yes (Death, Hospitalization)
  Sender: FDA-Public Use
  Company Number: GB-CELGENEUS-GBR-20201104362

PATIENT
  Age: 72 Year
  Sex: Male

DRUGS (2)
  1. THALOMID [Suspect]
     Active Substance: THALIDOMIDE
     Indication: PLASMA CELL MYELOMA
     Route: 048
  2. LENALIDOMIDE [Suspect]
     Active Substance: LENALIDOMIDE
     Indication: PLASMA CELL MYELOMA
     Route: 048

REACTIONS (1)
  - Adenocarcinoma of colon [Fatal]

NARRATIVE: CASE EVENT DATE: 20200901
